FAERS Safety Report 25851266 (Version 1)
Quarter: 2025Q3

REPORT INFORMATION
  Report Type: Spontaneous
  Country: US (occurrence: US)
  Receive Date: 20250926
  Receipt Date: 20250926
  Transmission Date: 20251021
  Serious: No
  Sender: XERIS PHARMACEUTICALS
  Company Number: US-BRIAN CONNER SVP QUALITY AND CHIEF COMPLIANCE OFFICER-2024XER00646

PATIENT
  Sex: Male
  Weight: 45.4 kg

DRUGS (4)
  1. KEVEYIS [Suspect]
     Active Substance: DICHLORPHENAMIDE
     Indication: Familial periodic paralysis
     Route: 048
     Dates: start: 2010
  2. KEVEYIS [Suspect]
     Active Substance: DICHLORPHENAMIDE
     Route: 048
     Dates: start: 20240422
  3. DIAMOX SEQUELS [Concomitant]
     Active Substance: ACETAZOLAMIDE
     Dosage: 250 MG, 2X/DAY
  4. POTASSIUM [Concomitant]
     Active Substance: POTASSIUM

REACTIONS (2)
  - Drug ineffective [Not Recovered/Not Resolved]
  - Paralysis [Not Recovered/Not Resolved]
